FAERS Safety Report 20379645 (Version 1)
Quarter: 2022Q1

REPORT INFORMATION
  Report Type: Spontaneous
  Country: US (occurrence: None)
  Receive Date: 20220126
  Receipt Date: 20220126
  Transmission Date: 20220423
  Serious: No
  Sender: FDA-Public Use
  Company Number: None

PATIENT
  Age: 24 Year
  Sex: Female

DRUGS (1)
  1. ZYRTEC [Suspect]
     Active Substance: CETIRIZINE HYDROCHLORIDE
     Indication: Multiple allergies

REACTIONS (5)
  - Pruritus [None]
  - Burning sensation [None]
  - Loss of personal independence in daily activities [None]
  - Sleep disorder [None]
  - Pruritus genital [None]

NARRATIVE: CASE EVENT DATE: 20220119
